FAERS Safety Report 24045832 (Version 2)
Quarter: 2024Q3

REPORT INFORMATION
  Report Type: Spontaneous
  Country: BR (occurrence: BR)
  Receive Date: 20240703
  Receipt Date: 20240826
  Transmission Date: 20241016
  Serious: Yes (Other)
  Sender: NOVARTIS
  Company Number: BR-002147023-NVSC2024BR135663

PATIENT
  Sex: Male

DRUGS (1)
  1. COSENTYX [Suspect]
     Active Substance: SECUKINUMAB
     Indication: Ankylosing spondylitis
     Dosage: 150 MILLIGRAM PER MILLILITRE, (1 APPLICATION EVERY 30 DAYS)
     Route: 065
     Dates: start: 2019

REACTIONS (6)
  - Autoimmune disorder [Unknown]
  - Drug dependence [Unknown]
  - Eye inflammation [Unknown]
  - Inflammation [Unknown]
  - Product availability issue [Not Recovered/Not Resolved]
  - Inappropriate schedule of product administration [Recovered/Resolved]
